FAERS Safety Report 5048953-5 (Version None)
Quarter: 2006Q3

REPORT INFORMATION
  Report Type: 
  Country: None (occurrence: None)
  Receive Date: 20060712
  Receipt Date: 20050922
  Transmission Date: 20061208
  Serious: No
  Sender: FDA-Public Use
  Company Number: US-GLAXOSMITHKLINE-A0575760A

PATIENT
  Age: 49 Year
  Sex: Female

DRUGS (1)
  1. IMITREX [Suspect]
     Dosage: 1TAB AS REQUIRED
     Route: 048

REACTIONS (1)
  - DRUG INEFFECTIVE [None]
